FAERS Safety Report 10252558 (Version 1)
Quarter: 2014Q2

REPORT INFORMATION
  Report Type: Spontaneous
  Country: US (occurrence: None)
  Receive Date: 20140619
  Receipt Date: 20140619
  Transmission Date: 20141212
  Serious: Yes (Other)
  Sender: FDA-Public Use
  Company Number: AUR-APL-2014-06434

PATIENT
  Age: 83 Year
  Sex: Female
  Weight: 176.8 kg

DRUGS (8)
  1. METFORMIN [Suspect]
     Indication: DIABETES MELLITUS
  2. GLIPIZIDE [Suspect]
     Indication: DIABETES MELLITUS
  3. INSULIN [Suspect]
     Indication: DIABETES MELLITUS
  4. RAMIPRIL [Concomitant]
  5. LISINOPRIL [Concomitant]
  6. SIMVASTATIN [Concomitant]
  7. CELEBREX (CELECOXIB) [Concomitant]
  8. TOLTERODINE [Concomitant]

REACTIONS (1)
  - Diabetes mellitus inadequate control [None]
